FAERS Safety Report 4514298-2 (Version None)
Quarter: 2004Q4

REPORT INFORMATION
  Report Type: 
  Country: None (occurrence: None)
  Receive Date: 20041124
  Receipt Date: 20041115
  Transmission Date: 20050328
  Serious: Yes (Death, Life-Threatening, Hospitalization, Disabling)
  Sender: FDA-Public Use
  Company Number: M2004.1706

PATIENT
  Age: 42 Year
  Sex: Male

DRUGS (8)
  1. ISONIAZID [Suspect]
     Indication: PULMONARY TUBERCULOSIS
     Dosage: 600MG DAILY ORAL
     Route: 048
     Dates: start: 20040301, end: 20040316
  2. RIFAMPICIN [Suspect]
     Indication: PULMONARY TUBERCULOSIS
     Dosage: 600MG DAILY ORAL
     Route: 048
     Dates: start: 20040301, end: 20040308
  3. PYRAZINAMIDE [Suspect]
     Indication: MENINGITIS TUBERCULOUS
     Dosage: 2 G, QD, ORAL
     Route: 048
     Dates: start: 20040301, end: 20040316
  4. PYRIDOXINE HCL [Concomitant]
  5. THIAMINE [Concomitant]
  6. DEXAMETHASONE [Concomitant]
  7. OMEPRAZOLE [Concomitant]
  8. ERYTHROMYCIN [Concomitant]

REACTIONS (6)
  - CHOLESTASIS [None]
  - DISSEMINATED INTRAVASCULAR COAGULATION [None]
  - HYDROCEPHALUS [None]
  - INFLAMMATION [None]
  - RENAL IMPAIRMENT [None]
  - RESPIRATORY FAILURE [None]
